FAERS Safety Report 17006811 (Version 1)
Quarter: 2019Q4

REPORT INFORMATION
  Report Type: Spontaneous
  Country: US (occurrence: US)
  Receive Date: 20191107
  Receipt Date: 20191107
  Transmission Date: 20200122
  Serious: Yes (Hospitalization)
  Sender: FDA-Public Use
  Company Number: US-JNJFOC-20191102175

PATIENT
  Age: 46 Year
  Sex: Male

DRUGS (1)
  1. SYMTUZA [Suspect]
     Active Substance: COBICISTAT\DARUNAVIR\EMTRICITABINE\TENOFOVIR ALAFENAMIDE
     Indication: PRODUCT USED FOR UNKNOWN INDICATION
     Dosage: 800MG?DRV, 150?COBISCISTAT,?10MG TAF,?200MG?EMTRIVA??TAKEN FOR THE PAST 5 YEARS
     Route: 048

REACTIONS (1)
  - Myocardial infarction [Unknown]
